FAERS Safety Report 9351772 (Version 3)
Quarter: 2013Q4

REPORT INFORMATION
  Report Type: Spontaneous
  Country: US (occurrence: US)
  Receive Date: 20130617
  Receipt Date: 20131018
  Transmission Date: 20140711
  Serious: Yes (Hospitalization)
  Sender: FDA-Public Use
  Company Number: US-BIOGENIDEC-2013BI051646

PATIENT
  Age: 49 Year
  Sex: Male

DRUGS (1)
  1. AVONEX [Suspect]
     Indication: MULTIPLE SCLEROSIS
     Route: 030
     Dates: start: 20110515

REACTIONS (7)
  - Respiratory failure [Recovered/Resolved]
  - Eye pain [Recovered/Resolved]
  - Somnolence [Recovered/Resolved]
  - Memory impairment [Not Recovered/Not Resolved]
  - Flatulence [Unknown]
  - Asthma [Unknown]
  - Amnesia [Not Recovered/Not Resolved]
